FAERS Safety Report 9852007 (Version 1)
Quarter: 2014Q1

REPORT INFORMATION
  Report Type: Spontaneous
  Country: AU (occurrence: None)
  Receive Date: 20140127
  Receipt Date: 20140127
  Transmission Date: 20141002
  Serious: Yes (Death)
  Sender: FDA-Public Use
  Company Number: AUR-APL-2014-00586

PATIENT
  Age: 52 Year
  Sex: Female

DRUGS (3)
  1. QUETIAPINE (QUETIAPINE) [Suspect]
     Indication: PRODUCT USED FOR UNKNOWN INDICATION
  2. DULOXETINE (DULOXETINE) (DULOXETINE) [Suspect]
     Indication: PRODUCT USED FOR UNKNOWN INDICATION
  3. HALOPERIDOL (HALOPERIDOL) (HALOPERIDOL) [Suspect]
     Indication: PRODUCT USED FOR UNKNOWN INDICATION

REACTIONS (1)
  - Upper airway obstruction [None]
